FAERS Safety Report 9341512 (Version 2)
Quarter: 2013Q2

REPORT INFORMATION
  Report Type: Spontaneous
  Country: BR (occurrence: BR)
  Receive Date: 20130611
  Receipt Date: 20130627
  Transmission Date: 20140414
  Serious: Yes (Death, Other)
  Sender: FDA-Public Use
  Company Number: BR-JNJFOC-20130522059

PATIENT
  Sex: 0

DRUGS (1)
  1. CONCERTA [Suspect]
     Indication: ATTENTION DEFICIT/HYPERACTIVITY DISORDER
     Route: 048

REACTIONS (13)
  - Sudden death [Fatal]
  - Blood pressure increased [Unknown]
  - Psychotic disorder [Unknown]
  - Heart rate increased [Unknown]
  - Weight decreased [Unknown]
  - Tic [Unknown]
  - Growth retardation [Unknown]
  - Decreased appetite [Unknown]
  - Abdominal pain upper [Unknown]
  - Headache [Unknown]
  - Irritability [Unknown]
  - Medication error [Unknown]
  - Drug intolerance [Unknown]
